FAERS Safety Report 12239158 (Version 1)
Quarter: 2016Q2

REPORT INFORMATION
  Report Type: Report from Study
  Country: US (occurrence: US)
  Receive Date: 20160405
  Receipt Date: 20160405
  Transmission Date: 20160815
  Serious: No
  Sender: FDA-Public Use
  Company Number: ADR-2013-01482

PATIENT
  Age: 53 Year
  Sex: Female

DRUGS (2)
  1. DILAUDID [Suspect]
     Active Substance: HYDROMORPHONE HYDROCHLORIDE
     Dosage: 2.399 MG/DAY
     Route: 037
  2. BACLOFEN. [Suspect]
     Active Substance: BACLOFEN
     Dosage: 107.95 MCG/DAY
     Route: 037

REACTIONS (5)
  - Medical device site pain [Recovered/Resolved]
  - Weight decreased [Recovered/Resolved]
  - Multiple sclerosis [Recovered/Resolved]
  - Medical device site discomfort [Recovered/Resolved]
  - Medical device site scar [Recovered/Resolved]
